FAERS Safety Report 5526883-X (Version None)
Quarter: 2007Q4

REPORT INFORMATION
  Report Type: 
  Country: None (occurrence: None)
  Receive Date: 20071127
  Receipt Date: 20071115
  Transmission Date: 20080405
  Serious: Yes (Life-Threatening, Hospitalization)
  Sender: FDA-Public Use
  Company Number: JP-PFIZER INC-2006155283

PATIENT
  Sex: Female
  Weight: 54 kg

DRUGS (9)
  1. NORVASC [Suspect]
     Indication: HYPERTENSION
     Dosage: DAILY DOSE:5MG
  2. BLOPRESS [Suspect]
     Indication: HYPERTENSION
     Route: 048
     Dates: start: 20061023, end: 20061214
  3. PENTCILLIN [Suspect]
     Indication: ANTIBIOTIC PROPHYLAXIS
     Dosage: DAILY DOSE:1GRAM-FREQ:DAILY
     Route: 042
     Dates: start: 20061215, end: 20061215
  4. FENTANEST [Concomitant]
     Dosage: DAILY DOSE:100MCG-FREQ:DAILY
     Route: 042
     Dates: start: 20061215, end: 20061215
  5. DIPRIVAN [Concomitant]
     Dosage: DAILY DOSE:100MG-FREQ:DAILY
     Route: 042
     Dates: start: 20061215, end: 20061215
  6. MUSCULAX [Concomitant]
     Dosage: DAILY DOSE:6MG-FREQ:DAILY
     Route: 042
     Dates: start: 20061215, end: 20061215
  7. ISOZOL [Concomitant]
     Dosage: DAILY DOSE:125MG-FREQ:DAILY
     Route: 042
     Dates: start: 20061215, end: 20061215
  8. NALOXONE HYDROCHLORIDE [Concomitant]
     Dosage: DAILY DOSE:.2MG-FREQ:DAILY
     Route: 042
     Dates: start: 20061215, end: 20061215
  9. SEVOFLURANE [Concomitant]
     Dates: start: 20061215, end: 20061215

REACTIONS (1)
  - LARYNGEAL OEDEMA [None]
